FAERS Safety Report 7512294-4 (Version None)
Quarter: 2011Q2

REPORT INFORMATION
  Report Type: 
  Country: None (occurrence: None)
  Receive Date: 20110520
  Receipt Date: 20100114
  Transmission Date: 20111010
  Serious: Yes (Other)
  Sender: FDA-Public Use
  Company Number: BR-000284

PATIENT
  Sex: Male

DRUGS (1)
  1. NAGLAZYME [Suspect]
     Indication: MUCOPOLYSACCHARIDOSIS IV
     Dosage: DOSE ANS FREQUENCY NOT REPORTED INTRAVENOUS DRIP
     Route: 041
     Dates: start: 20070101

REACTIONS (2)
  - MYELOPATHY [None]
  - SPINAL CORD COMPRESSION [None]
